FAERS Safety Report 10579768 (Version 1)
Quarter: 2014Q4

REPORT INFORMATION
  Report Type: Spontaneous
  Country: US (occurrence: US)
  Receive Date: 20141112
  Receipt Date: 20141112
  Transmission Date: 20150529
  Serious: No
  Sender: FDA-Public Use
  Company Number: US-SHIRE-US201407308

PATIENT
  Sex: Female
  Weight: 61.22 kg

DRUGS (5)
  1. LIALDA [Suspect]
     Active Substance: MESALAMINE
     Dosage: 4.8 G (4 TABLETS), UNKNOWN (PER DAY)
     Route: 048
     Dates: start: 2014, end: 2014
  2. LIALDA [Suspect]
     Active Substance: MESALAMINE
     Dosage: 4.8 G (4 TABLETS), UNKNOWN (PER DAY)
     Route: 048
     Dates: start: 2014, end: 2014
  3. LIALDA [Suspect]
     Active Substance: MESALAMINE
     Indication: COLITIS ULCERATIVE
     Dosage: 2.4 G (TWO TABLETS), UNKNOWN (PER DAY)
     Route: 048
     Dates: start: 201401, end: 2014
  4. LIALDA [Suspect]
     Active Substance: MESALAMINE
     Dosage: 3.6 G (3 TABLETS), UNKNOWN (PER DAY)
     Route: 048
     Dates: start: 201403, end: 2014
  5. LIALDA [Suspect]
     Active Substance: MESALAMINE
     Dosage: 2.4 G (TWO TABLETS), UNKNOWN (PER DAY)
     Route: 048
     Dates: start: 2014

REACTIONS (2)
  - Drug ineffective [Recovered/Resolved]
  - Condition aggravated [Not Recovered/Not Resolved]

NARRATIVE: CASE EVENT DATE: 2014
